FAERS Safety Report 7130308-0 (Version None)
Quarter: 2010Q4

REPORT INFORMATION
  Report Type: 
  Country: None (occurrence: None)
  Receive Date: 20101116
  Receipt Date: 20101109
  Transmission Date: 20110411
  Serious: Yes (Other)
  Sender: FDA-Public Use
  Company Number: 2010SP048417

PATIENT
  Age: 26 Year
  Sex: Female
  Weight: 51 kg

DRUGS (3)
  1. DESOGESTREL/ETHINYL ESTRADIOL [Suspect]
     Indication: CONTRACEPTION
     Dosage: ; PO
     Route: 048
     Dates: start: 20040101
  2. NOVAMOX (AMOXICILLIN +CLAVULANIC ACID) (SPEKTRAMOX /02043401/) [Suspect]
     Indication: SINUSITIS
     Dosage: ; PO
     Route: 048
     Dates: start: 20100908
  3. MINOCICLINE (MINOCYCLINE) [Suspect]
     Indication: PRODUCT USED FOR UNKNOWN INDICATION
     Dates: start: 20101109

REACTIONS (2)
  - DRUG INTERACTION [None]
  - INCORRECT DOSE ADMINISTERED [None]
